FAERS Safety Report 6490125-1 (Version None)
Quarter: 2009Q4

REPORT INFORMATION
  Report Type: 
  Country: None (occurrence: None)
  Receive Date: 20091211
  Receipt Date: 20090513
  Transmission Date: 20100525
  Serious: Yes (Other)
  Sender: FDA-Public Use
  Company Number: A0785159A

PATIENT
  Age: 52 Year
  Sex: Female

DRUGS (4)
  1. FLONASE [Suspect]
     Dosage: 4PUFF PER DAY
     Route: 045
     Dates: start: 20070615, end: 20090101
  2. CITALOPRAM HYDROBROMIDE [Concomitant]
  3. ALBUTEROL [Concomitant]
  4. QVAR 40 [Concomitant]

REACTIONS (1)
  - ANOSMIA [None]
